FAERS Safety Report 18666296 (Version 2)
Quarter: 2021Q1

REPORT INFORMATION
  Report Type: Spontaneous
  Country: AT (occurrence: AT)
  Receive Date: 20201226
  Receipt Date: 20210304
  Transmission Date: 20210419
  Serious: Yes (Other)
  Sender: FDA-Public Use
  Company Number: AT-TEVA-2020-AT-1863358

PATIENT
  Age: 64 Year
  Sex: Male

DRUGS (24)
  1. DOXORUBICIN [DOXORUBICIN HYDROCHLORIDE] [Suspect]
     Active Substance: DOXORUBICIN HYDROCHLORIDE
     Indication: DIFFUSE LARGE B-CELL LYMPHOMA
     Dosage: (6 CYCLES R?CHOP)
     Route: 065
     Dates: start: 201611, end: 201704
  2. RITUXIMAB. [Suspect]
     Active Substance: RITUXIMAB
     Dosage: (2 ADDITIONAL CYCLES R?POLA)
     Route: 065
     Dates: start: 202009, end: 202010
  3. CYCLOPHOSPHAMIDE. [Suspect]
     Active Substance: CYCLOPHOSPHAMIDE
     Indication: DIFFUSE LARGE B-CELL LYMPHOMA
     Dosage: (LYMPHODEPLETING CHEMOTHERAPY)
     Route: 065
     Dates: start: 20191223, end: 20191224
  4. DEXAMETHASONE. [Suspect]
     Active Substance: DEXAMETHASONE
     Indication: DIFFUSE LARGE B-CELL LYMPHOMA
     Dosage: (4 CYCLES R?GDP)
     Route: 065
     Dates: start: 201812
  5. CYTARABINE. [Suspect]
     Active Substance: CYTARABINE
     Indication: DIFFUSE LARGE B-CELL LYMPHOMA
     Dosage: (HIGH DOSE BEAM)
     Route: 065
     Dates: start: 201903
  6. POLATUZUMAB VEDOTIN. [Suspect]
     Active Substance: POLATUZUMAB VEDOTIN
     Indication: DIFFUSE LARGE B-CELL LYMPHOMA
     Dosage: (BRIDGING THERAPY)
     Route: 065
     Dates: start: 20191205
  7. POLATUZUMAB VEDOTIN. [Suspect]
     Active Substance: POLATUZUMAB VEDOTIN
     Dosage: (4 CYCLES RITUXIMAB/POLATUZUMAB)
     Route: 065
     Dates: start: 202005, end: 202007
  8. GEMCITABINE. [Suspect]
     Active Substance: GEMCITABINE
     Indication: DIFFUSE LARGE B-CELL LYMPHOMA
     Dosage: (4 CYCLES R?GDP)
     Route: 065
     Dates: start: 201812
  9. MELPHALAN. [Suspect]
     Active Substance: MELPHALAN
     Indication: DIFFUSE LARGE B-CELL LYMPHOMA
     Dosage: (HIGH DOSE BEAM)
     Route: 065
     Dates: start: 201903
  10. RITUXIMAB. [Suspect]
     Active Substance: RITUXIMAB
     Dosage: (4 CYCLES WITH R?GDP)
     Route: 065
     Dates: start: 201812
  11. BENDAMUSTINE HYDROCHLORIDE. [Suspect]
     Active Substance: BENDAMUSTINE HYDROCHLORIDE
     Dosage: (BRIDGING THERAPY)
     Route: 042
     Dates: start: 20191205
  12. VINCRISTINE [Suspect]
     Active Substance: VINCRISTINE
     Indication: DIFFUSE LARGE B-CELL LYMPHOMA
     Dosage: (6 CYCLES R?CHOP)
     Route: 065
     Dates: start: 201611, end: 201704
  13. RITUXIMAB. [Suspect]
     Active Substance: RITUXIMAB
     Dosage: (BRIDGING THERAPY)
     Route: 065
     Dates: start: 20191205
  14. CISPLATIN. [Suspect]
     Active Substance: CISPLATIN
     Indication: DIFFUSE LARGE B-CELL LYMPHOMA
     Dosage: (4 CYCLES R?GDP)
     Route: 065
     Dates: start: 201812
  15. BENDAMUSTINE HYDROCHLORIDE. [Suspect]
     Active Substance: BENDAMUSTINE HYDROCHLORIDE
     Indication: DIFFUSE LARGE B-CELL LYMPHOMA
     Dosage: (3 CYCLES)
     Route: 042
     Dates: start: 201809
  16. CARMUSTINE. [Suspect]
     Active Substance: CARMUSTINE
     Indication: DIFFUSE LARGE B-CELL LYMPHOMA
     Dosage: (HIGH DOSE BEAM)
     Route: 065
     Dates: start: 201903
  17. CYCLOPHOSPHAMIDE. [Suspect]
     Active Substance: CYCLOPHOSPHAMIDE
     Indication: LYMPHOCYTE ADOPTIVE THERAPY
     Dosage: (6 CYCLES R?CHOP)
     Route: 065
     Dates: start: 201611, end: 201704
  18. POLATUZUMAB VEDOTIN. [Suspect]
     Active Substance: POLATUZUMAB VEDOTIN
     Dosage: (2 ADDITIONAL CYCLES R?POLA)
     Route: 065
     Dates: start: 202009, end: 202010
  19. FLUDARABINE [FLUDARABINE PHOSPHATE] [Suspect]
     Active Substance: FLUDARABINE PHOSPHATE
     Indication: LYMPHOCYTE ADOPTIVE THERAPY
     Dosage: (LYMPHODEPLETING CHEMOTHERAPY)
     Route: 065
     Dates: start: 20191223, end: 20191224
  20. RITUXIMAB. [Suspect]
     Active Substance: RITUXIMAB
     Dosage: (4 CYCLES RITUXIMAB/POLATUZUMAB)
     Route: 065
     Dates: start: 202005, end: 202007
  21. OBINUTUZUMAB. [Suspect]
     Active Substance: OBINUTUZUMAB
     Indication: DIFFUSE LARGE B-CELL LYMPHOMA
     Dosage: (3 CYCLES)
     Route: 065
     Dates: start: 201809
  22. RITUXIMAB. [Suspect]
     Active Substance: RITUXIMAB
     Indication: DIFFUSE LARGE B-CELL LYMPHOMA
     Dosage: (6 CYCLES R?CHOP)
     Route: 065
     Dates: start: 201611, end: 201704
  23. ETOPOSIDE. [Suspect]
     Active Substance: ETOPOSIDE
     Indication: DIFFUSE LARGE B-CELL LYMPHOMA
     Dosage: (HIGH DOSE BEAM)
     Route: 065
     Dates: start: 201903
  24. PREDNISONE. [Suspect]
     Active Substance: PREDNISONE
     Indication: DIFFUSE LARGE B-CELL LYMPHOMA
     Dosage: (6 CYCLES R?CHOP)
     Route: 065
     Dates: start: 201611, end: 201704

REACTIONS (5)
  - Diffuse large B-cell lymphoma [Unknown]
  - Product use in unapproved indication [Unknown]
  - Disease progression [Unknown]
  - Myelosuppression [Unknown]
  - Ill-defined disorder [Unknown]

NARRATIVE: CASE EVENT DATE: 201809
